FAERS Safety Report 11898456 (Version 1)
Quarter: 2016Q1

REPORT INFORMATION
  Report Type: Spontaneous
  Country: US (occurrence: US)
  Receive Date: 20160108
  Receipt Date: 20160108
  Transmission Date: 20160526
  Serious: No
  Sender: FDA-Public Use
  Company Number: US-009507513-1601USA002358

PATIENT
  Age: 63 Year
  Sex: Female

DRUGS (1)
  1. BELSOMRA [Suspect]
     Active Substance: SUVOREXANT
     Indication: INSOMNIA
     Dosage: 20 MG/ DAY
     Route: 048
     Dates: start: 201506

REACTIONS (3)
  - Sinus congestion [Unknown]
  - Tinnitus [Unknown]
  - Sinus headache [Unknown]

NARRATIVE: CASE EVENT DATE: 2015
